FAERS Safety Report 8781178 (Version 2)
Quarter: 2012Q4

REPORT INFORMATION
  Report Type: 
  Country: CN (occurrence: CN)
  Receive Date: 20120913
  Receipt Date: 20121001
  Transmission Date: 20130627
  Serious: Yes (Death)
  Sender: FDA-Public Use
  Company Number: PHHY2012CN079063

PATIENT

DRUGS (7)
  1. CICLOSPORIN [Suspect]
     Indication: PROPHYLAXIS AGAINST GRAFT VERSUS HOST DISEASE
     Dosage: 1.25 mg/kg, Q12H
     Route: 042
  2. CICLOSPORIN [Suspect]
     Indication: STEM CELL TRANSPLANT
  3. MYCOPHENOLATE MOFETIL [Suspect]
     Indication: PROPHYLAXIS AGAINST GRAFT VERSUS HOST DISEASE
     Dosage: 0.5 g, BID
     Route: 048
  4. METHOTREXATE [Suspect]
     Indication: PROPHYLAXIS AGAINST GRAFT VERSUS HOST DISEASE
     Dosage: 15 mg/m2, UNK
     Route: 042
  5. METHOTREXATE [Suspect]
     Dosage: 10 mg/m2, UNK
     Route: 042
  6. BUSULFAN [Concomitant]
     Route: 042
  7. CYCLOPHOSPHAMIDE [Concomitant]
     Route: 042

REACTIONS (4)
  - Chronic graft versus host disease [Fatal]
  - Anaemia haemolytic autoimmune [Fatal]
  - Multi-organ failure [Fatal]
  - Haemolytic anaemia [Fatal]
